FAERS Safety Report 5440452-1 (Version None)
Quarter: 2007Q3

REPORT INFORMATION
  Report Type: 
  Country: None (occurrence: None)
  Receive Date: 20070831
  Receipt Date: 20070829
  Transmission Date: 20080115
  Serious: Yes (Death, Other)
  Sender: FDA-Public Use
  Company Number: US-ELI_LILLY_AND_COMPANY-US200708004609

PATIENT
  Age: 77 Year
  Sex: Female

DRUGS (3)
  1. ALIMTA [Suspect]
     Indication: NON-SMALL CELL LUNG CANCER
     Dates: start: 20070101
  2. VITAMIN B-12 [Concomitant]
  3. FOLIC ACID [Concomitant]
     Dosage: UNK, DAILY (1/D)
     Route: 048

REACTIONS (5)
  - BLOOD COUNT ABNORMAL [None]
  - HEPATIC FAILURE [None]
  - MALIGNANT NEOPLASM PROGRESSION [None]
  - OESOPHAGITIS [None]
  - STOMATITIS [None]
